FAERS Safety Report 18431556 (Version 1)
Quarter: 2020Q4

REPORT INFORMATION
  Report Type: Spontaneous
  Country: US (occurrence: US)
  Receive Date: 20201027
  Receipt Date: 20201027
  Transmission Date: 20210114
  Serious: Yes (Hospitalization)
  Sender: FDA-Public Use
  Company Number: None

PATIENT
  Age: 16 Year
  Sex: Female

DRUGS (1)
  1. REMICADE [Suspect]
     Active Substance: INFLIXIMAB
     Indication: CROHN^S DISEASE
     Dosage: ?          OTHER FREQUENCY:WEEK2+6 THEN 8WKS ;?
     Route: 042
     Dates: start: 20200903

REACTIONS (3)
  - Dermatitis acneiform [None]
  - Reaction to preservatives [None]
  - Pruritus [None]

NARRATIVE: CASE EVENT DATE: 20200905
